FAERS Safety Report 16801716 (Version 2)
Quarter: 2019Q4

REPORT INFORMATION
  Report Type: Spontaneous
  Country: JP (occurrence: JP)
  Receive Date: 20190912
  Receipt Date: 20191025
  Transmission Date: 20200122
  Serious: Yes (Hospitalization, Other)
  Sender: FDA-Public Use
  Company Number: JP-VIFOR (INTERNATIONAL) INC.-VIT-2019-08769

PATIENT
  Age: 81 Year
  Sex: Male

DRUGS (10)
  1. AMLODIPINE [Concomitant]
     Active Substance: AMLODIPINE BESYLATE
  2. SIGMART [Concomitant]
     Active Substance: NICORANDIL
  3. NICORANDIL [Concomitant]
     Active Substance: NICORANDIL
  4. NEXIUM [Concomitant]
     Active Substance: ESOMEPRAZOLE MAGNESIUM
  5. PITAVASTATIN CA [Concomitant]
     Active Substance: PITAVASTATIN CALCIUM
  6. MIRCERA [Suspect]
     Active Substance: METHOXY POLYETHYLENE GLYCOL-EPOETIN BETA
     Indication: NEPHROGENIC ANAEMIA
     Route: 058
     Dates: start: 20190605, end: 20190730
  7. ETHYL ICOSAPENTATE [Concomitant]
     Active Substance: ICOSAPENT ETHYL
  8. SENNOSIDE A+B [Concomitant]
     Active Substance: SENNOSIDES A AND B
  9. MIRCERA [Suspect]
     Active Substance: METHOXY POLYETHYLENE GLYCOL-EPOETIN BETA
     Route: 058
     Dates: start: 20190730, end: 20190816
  10. TELMISARTAN. [Concomitant]
     Active Substance: TELMISARTAN

REACTIONS (7)
  - Atheroembolism [Not Recovered/Not Resolved]
  - Injection site pain [Recovered/Resolved]
  - Nausea [Unknown]
  - Purpura [Recovering/Resolving]
  - Malaise [Unknown]
  - Injection site induration [Unknown]
  - Renal failure [Unknown]

NARRATIVE: CASE EVENT DATE: 20190730
